FAERS Safety Report 25567219 (Version 3)
Quarter: 2025Q4

REPORT INFORMATION
  Report Type: Spontaneous
  Country: CA (occurrence: CA)
  Receive Date: 20250716
  Receipt Date: 20251007
  Transmission Date: 20260119
  Serious: Yes (Other)
  Sender: PFIZER
  Company Number: CA-PFIZER INC-202500141864

PATIENT
  Age: 62 Year
  Sex: Male

DRUGS (2)
  1. SULFASALAZINE [Suspect]
     Active Substance: SULFASALAZINE
     Dosage: 2 G, UNKNOWN FREQUENCY
     Route: 065
     Dates: start: 2014
  2. SULFASALAZINE [Suspect]
     Active Substance: SULFASALAZINE
     Dosage: 2 G, UNKNOWN FREQUENCY
     Route: 065
     Dates: start: 2016

REACTIONS (2)
  - Tongue neoplasm malignant stage unspecified [Unknown]
  - Therapeutic product effect incomplete [Unknown]
